FAERS Safety Report 5716497-0 (Version None)
Quarter: 2008Q2

REPORT INFORMATION
  Report Type: 
  Country: None (occurrence: None)
  Receive Date: 20080424
  Receipt Date: 20080417
  Transmission Date: 20081010
  Serious: No
  Sender: FDA-Public Use
  Company Number: US-BAXTER-2008BH003156

PATIENT
  Age: 23 Month
  Sex: Female
  Weight: 10 kg

DRUGS (1)
  1. HEPARIN SODIUM [Suspect]
     Indication: DRUG USE FOR UNKNOWN INDICATION
     Dosage: DOSE UNIT:UNKNOWN
     Route: 064
     Dates: start: 20050501, end: 20060117

REACTIONS (1)
  - IRON DEFICIENCY ANAEMIA [None]
